FAERS Safety Report 10037353 (Version 2)
Quarter: 2014Q2

REPORT INFORMATION
  Report Type: Spontaneous
  Country: US (occurrence: US)
  Receive Date: 20140326
  Receipt Date: 20140404
  Transmission Date: 20141212
  Serious: No
  Sender: FDA-Public Use
  Company Number: US-BAYER-2014-042350

PATIENT
  Sex: Female

DRUGS (1)
  1. DESONATE GEL [Suspect]

REACTIONS (1)
  - Off label use [None]
